FAERS Safety Report 23017736 (Version 5)
Quarter: 2024Q2

REPORT INFORMATION
  Report Type: Report from Study
  Country: US (occurrence: US)
  Receive Date: 20231003
  Receipt Date: 20240524
  Transmission Date: 20240715
  Serious: Yes (Other)
  Sender: FDA-Public Use
  Company Number: US-002147023-NVSC2023US210110

PATIENT
  Sex: Female

DRUGS (1)
  1. KESIMPTA [Suspect]
     Active Substance: OFATUMUMAB
     Indication: Multiple sclerosis
     Dosage: UNK
     Route: 065

REACTIONS (13)
  - Glaucoma [Unknown]
  - Visual impairment [Unknown]
  - Visual field defect [Unknown]
  - Memory impairment [Unknown]
  - Weight decreased [Unknown]
  - Balance disorder [Unknown]
  - Tremor [Unknown]
  - Aphasia [Unknown]
  - Pain in extremity [Unknown]
  - Back pain [Unknown]
  - Migraine [Unknown]
  - Headache [Unknown]
  - Inappropriate schedule of product administration [Unknown]
